FAERS Safety Report 16221170 (Version 2)
Quarter: 2019Q2

REPORT INFORMATION
  Report Type: Report from Study
  Country: None (occurrence: TW)
  Receive Date: 20190422
  Receipt Date: 20190510
  Transmission Date: 20190711
  Serious: Yes (Hospitalization)
  Sender: FDA-Public Use
  Company Number: TW-ABBVIE-19K-153-2751451-00

PATIENT
  Age: 35 Year
  Sex: Female
  Weight: 42 kg

DRUGS (2)
  1. HUMIRA [Suspect]
     Active Substance: ADALIMUMAB
     Indication: COLITIS ULCERATIVE
     Route: 058
     Dates: start: 20181006, end: 20181122
  2. METRONIDAZOLE. [Concomitant]
     Active Substance: METRONIDAZOLE
     Indication: COLITIS ULCERATIVE
     Dates: start: 20181115

REACTIONS (3)
  - Gastrointestinal perforation [Recovering/Resolving]
  - Pyrexia [Recovering/Resolving]
  - Abscess intestinal [Recovering/Resolving]

NARRATIVE: CASE EVENT DATE: 20181123
